FAERS Safety Report 6643983-1 (Version None)
Quarter: 2010Q1

REPORT INFORMATION
  Report Type: 
  Country: None (occurrence: None)
  Receive Date: 20100318
  Receipt Date: 20100318
  Transmission Date: 20100710
  Serious: No
  Sender: FDA-Public Use
  Company Number: None

PATIENT
  Sex: Female
  Weight: 78.5 kg

DRUGS (2)
  1. CAPECITABINE [Suspect]
     Indication: PANCREATIC CARCINOMA
     Dosage: CAPECITABINE, 1800 MG BID ORAL
     Route: 048
     Dates: start: 20090806, end: 20091226
  2. GEMCITABINE HCL [Suspect]
     Indication: PANCREATIC CARCINOMA
     Dosage: GEMCITABINE, 1890MG Q2 WEEKS IV
     Route: 042
     Dates: start: 20090806

REACTIONS (3)
  - EYE SWELLING [None]
  - OEDEMA PERIPHERAL [None]
  - SWELLING FACE [None]
